FAERS Safety Report 7024082-6 (Version None)
Quarter: 2010Q4

REPORT INFORMATION
  Report Type: 
  Country: None (occurrence: None)
  Receive Date: 20101001
  Receipt Date: 20100921
  Transmission Date: 20110411
  Serious: Yes (Hospitalization)
  Sender: FDA-Public Use
  Company Number: US-JNJFOC-20100907055

PATIENT
  Sex: Female
  Weight: 59.88 kg

DRUGS (15)
  1. SANDOZ FENTANYL TRANSDERMAL SYSTEM [Suspect]
     Indication: FIBROMYALGIA
     Dosage: NDC: 0781-7242-55
     Route: 062
  2. SANDOZ FENTANYL TRANSDERMAL SYSTEM [Suspect]
     Indication: OSTEOPOROSIS
     Dosage: NDC: 0781-7242-55
     Route: 062
  3. SANDOZ FENTANYL TRANSDERMAL SYSTEM [Suspect]
     Indication: RHEUMATOID ARTHRITIS
     Dosage: NDC: 0781-7242-55
     Route: 062
  4. SANDOZ FENTANYL TRANSDERMAL SYSTEM [Suspect]
     Dosage: NDC:0781-7112-55
     Route: 062
  5. SANDOZ FENTANYL TRANSDERMAL SYSTEM [Suspect]
     Dosage: NDC: 0781-7112-55
     Route: 062
  6. SANDOZ FENTANYL TRANSDERMAL SYSTEM [Suspect]
     Dosage: NDC:0781-7112-55
     Route: 062
  7. SANDOZ FENTANYL TRANSDERMAL SYSTEM [Suspect]
     Dosage: NDC: 0781-7112-55
     Route: 062
  8. SANDOZ FENTANYL TRANSDERMAL SYSTEM [Suspect]
     Dosage: NDC:0781-7112-55
     Route: 062
  9. SANDOZ FENTANYL TRANSDERMAL SYSTEM [Suspect]
     Dosage: NDC: 0781-7112-55
     Route: 062
  10. PLAVIX [Suspect]
     Indication: PRODUCT USED FOR UNKNOWN INDICATION
     Route: 065
  11. PROMETHAZINE [Concomitant]
     Indication: VOMITING
     Route: 048
  12. PROMETHAZINE [Concomitant]
     Indication: NAUSEA
     Route: 048
  13. DICYCLOMINE [Concomitant]
     Indication: MUSCLE SPASMS
     Route: 048
  14. DICYCLOMINE [Concomitant]
     Route: 048
  15. LISINOPRIL [Concomitant]
     Indication: HYPERTENSION
     Route: 048

REACTIONS (8)
  - CARDIAC DISORDER [None]
  - DRUG DOSE OMISSION [None]
  - DRUG INEFFECTIVE [None]
  - DYSPNOEA [None]
  - KNEE ARTHROPLASTY [None]
  - THROMBOSIS [None]
  - TREATMENT NONCOMPLIANCE [None]
  - URTICARIA [None]
